FAERS Safety Report 6454252-7 (Version None)
Quarter: 2009Q4

REPORT INFORMATION
  Report Type: 
  Country: None (occurrence: None)
  Receive Date: 20091124
  Receipt Date: 20091110
  Transmission Date: 20100525
  Serious: Yes (Other)
  Sender: FDA-Public Use
  Company Number: CA-GENENTECH-284781

PATIENT
  Sex: Male
  Weight: 62.6 kg

DRUGS (1)
  1. XOLAIR [Suspect]
     Indication: ASTHMA
     Dosage: 375 MG, 2/WEEK
     Route: 058
     Dates: start: 20050928

REACTIONS (5)
  - BACK PAIN [None]
  - BLOOD PRESSURE INCREASED [None]
  - INJURY [None]
  - SURGERY [None]
  - WEIGHT DECREASED [None]
